FAERS Safety Report 7035586-4 (Version None)
Quarter: 2010Q4

REPORT INFORMATION
  Report Type: 
  Country: None (occurrence: None)
  Receive Date: 20101008
  Receipt Date: 20100930
  Transmission Date: 20110411
  Serious: Yes (Other)
  Sender: FDA-Public Use
  Company Number: PE-PFIZER INC-2010124285

PATIENT
  Age: 54 Year
  Sex: Female

DRUGS (1)
  1. LIPITOR [Suspect]
     Indication: HYPERCHOLESTEROLAEMIA
     Dosage: 10 MG, 1X/DAY
     Route: 048
     Dates: start: 20100831, end: 20100901

REACTIONS (5)
  - ARTHRALGIA [None]
  - EYELID OEDEMA [None]
  - MYALGIA [None]
  - OEDEMA PERIPHERAL [None]
  - PLEURITIC PAIN [None]
